FAERS Safety Report 4312094-2 (Version None)
Quarter: 2004Q1

REPORT INFORMATION
  Report Type: 
  Country: None (occurrence: None)
  Receive Date: 20040303
  Receipt Date: 20031209
  Transmission Date: 20041129
  Serious: Yes (Hospitalization)
  Sender: FDA-Public Use
  Company Number: 03P-062-0244771-00

PATIENT
  Age: 40 Year
  Sex: Female
  Weight: 65 kg

DRUGS (5)
  1. AKINETON [Suspect]
     Indication: DEPENDENCE
     Dosage: SEE IMAGE
     Route: 048
     Dates: start: 20020822, end: 20020823
  2. AKINETON [Suspect]
     Indication: DRUG ABUSER
     Dosage: SEE IMAGE
     Route: 048
     Dates: start: 20020822, end: 20020823
  3. AKINETON [Suspect]
     Indication: EXTRAPYRAMIDAL DISORDER
     Dosage: SEE IMAGE
     Route: 048
     Dates: start: 20020822, end: 20020823
  4. AMISULPRIDE [Suspect]
     Indication: SCHIZOAFFECTIVE DISORDER
     Dosage: 200 MG, 1 IN 2 D, PER ORAL
     Route: 048
  5. SERTRALINE HCL [Concomitant]

REACTIONS (5)
  - DEPENDENCE [None]
  - DEPRESSION [None]
  - DRUG ABUSER [None]
  - EXTRAPYRAMIDAL DISORDER [None]
  - SUICIDE ATTEMPT [None]
